FAERS Safety Report 23674414 (Version 1)
Quarter: 2024Q1

REPORT INFORMATION
  Report Type: Spontaneous
  Country: JP (occurrence: JP)
  Receive Date: 20240326
  Receipt Date: 20240326
  Transmission Date: 20240410
  Serious: Yes (Other)
  Sender: FDA-Public Use
  Company Number: JP-BEH-2024170180

PATIENT
  Age: 33 Year
  Sex: Female

DRUGS (1)
  1. PRIVIGEN [Suspect]
     Active Substance: HUMAN IMMUNOGLOBULIN G
     Indication: Bickerstaff^s encephalitis
     Route: 042

REACTIONS (5)
  - Posterior reversible encephalopathy syndrome [Unknown]
  - Blood pressure increased [Unknown]
  - Cerebral infarction [Unknown]
  - No adverse event [Unknown]
  - Off label use [Unknown]
